FAERS Safety Report 7670212-2 (Version None)
Quarter: 2011Q3

REPORT INFORMATION
  Report Type: 
  Country: None (occurrence: None)
  Receive Date: 20110808
  Receipt Date: 20110729
  Transmission Date: 20111222
  Serious: Yes (Other)
  Sender: FDA-Public Use
  Company Number: US-RB-023654-11

PATIENT
  Age: 57 Year
  Sex: Female

DRUGS (4)
  1. SUBOXONE [Suspect]
     Indication: DRUG DEPENDENCE
     Dosage: SUBLINGUAL FILM - 16 TO 24 MG DAILY
     Route: 060
     Dates: start: 20110301, end: 20110401
  2. CHEMOTHERAPY ROUNDS [Concomitant]
     Indication: BREAST CANCER
     Dosage: DOSING INFORMATION UNKNOWN
     Route: 065
     Dates: start: 20110401
  3. SUBOXONE [Suspect]
     Dosage: SUBLINGUAL FILM - 16 TO 24 MG DAILY
     Route: 060
     Dates: start: 20110501
  4. MORPHINE [Concomitant]
     Indication: PRODUCT USED FOR UNKNOWN INDICATION
     Route: 065

REACTIONS (11)
  - OFF LABEL USE [None]
  - ABDOMINAL DISCOMFORT [None]
  - PAIN [None]
  - BREAST CANCER [None]
  - UNDERDOSE [None]
  - FATIGUE [None]
  - ARTHRALGIA [None]
  - JOINT STIFFNESS [None]
  - DRUG WITHDRAWAL SYNDROME [None]
  - FEELING HOT [None]
  - DRY MOUTH [None]
